FAERS Safety Report 7743256-X (Version None)
Quarter: 2011Q3

REPORT INFORMATION
  Report Type: 
  Country: None (occurrence: None)
  Receive Date: 20110912
  Receipt Date: 20110906
  Transmission Date: 20111222
  Serious: Yes (Congenital Anomaly, Other)
  Sender: FDA-Public Use
  Company Number: DE-ASTRAZENECA-2011SE29152

PATIENT
  Sex: Female
  Weight: 2.2 kg

DRUGS (3)
  1. ACTOS [Suspect]
     Indication: TYPE 2 DIABETES MELLITUS
     Dates: start: 20070410, end: 20080326
  2. SIOFOR [Concomitant]
     Indication: TYPE 2 DIABETES MELLITUS
  3. CANDESARTAN CILEXETIL [Suspect]
     Indication: HYPERTENSION
     Dates: start: 20071220, end: 20080326

REACTIONS (3)
  - NEONATAL HYPOXIA [None]
  - FOETAL GROWTH RESTRICTION [None]
  - HYPOGLYCAEMIA NEONATAL [None]
